FAERS Safety Report 8312145-4 (Version None)
Quarter: 2012Q2

REPORT INFORMATION
  Report Type: 
  Country: None (occurrence: None)
  Receive Date: 20120425
  Receipt Date: 20110808
  Transmission Date: 20120825
  Serious: Yes (Other)
  Sender: FDA-Public Use
  Company Number: US-TEVA-US017924

PATIENT
  Sex: Female
  Weight: 73 kg

DRUGS (4)
  1. PROVIGIL [Suspect]
     Indication: NARCOLEPSY
     Dosage: 400 MILLIGRAM;
     Route: 048
     Dates: start: 20050101
  2. EFFEXOR [Suspect]
     Dosage: 150 MILLIGRAM;
     Route: 048
     Dates: start: 20060101
  3. IMIPRAMINE [Concomitant]
     Indication: CATAPLEXY
     Dosage: 150 MILLIGRAM;
     Route: 048
  4. PROVIGIL [Suspect]
     Indication: CATAPLEXY

REACTIONS (2)
  - DRUG INTERACTION [None]
  - PSYCHOTIC DISORDER [None]
